FAERS Safety Report 10678187 (Version 2)
Quarter: 2015Q2

REPORT INFORMATION
  Report Type: Spontaneous
  Country: US (occurrence: None)
  Receive Date: 20141223
  Receipt Date: 20150413
  Transmission Date: 20150821
  Serious: Yes (Hospitalization, Other)
  Sender: FDA-Public Use
  Company Number: US-001553

PATIENT
  Sex: Female

DRUGS (5)
  1. GATTEX [Suspect]
     Active Substance: TEDUGLUTIDE\WATER
     Indication: SHORT-BOWEL SYNDROME
     Dosage: QOD, STREN.VOLUM: 0.13 ML:FREQU: EVERY OTHER DAY SUBCUTANEOUS
     Route: 058
     Dates: start: 20141117, end: 201502
  2. MULTIVITAMIN [Concomitant]
     Active Substance: VITAMINS
  3. ELECTROLYTE SOLUTIONS [Concomitant]
     Active Substance: UNSPECIFIED INGREDIENT
  4. SYNTHROID [Concomitant]
     Active Substance: LEVOTHYROXINE SODIUM
  5. SOLUTIONS FOR PARENTERAL NUTRITION [Concomitant]
     Active Substance: AMINO ACIDS\DEXTROSE\ELECTROLYTES NOS

REACTIONS (10)
  - Toxicity to various agents [None]
  - Gastric disorder [None]
  - Constipation [None]
  - Foot fracture [None]
  - Blood creatinine increased [None]
  - Headache [None]
  - Peripheral swelling [None]
  - Fall [None]
  - Dehydration [None]
  - Abdominal discomfort [None]

NARRATIVE: CASE EVENT DATE: 2014
